FAERS Safety Report 5985925-8 (Version None)
Quarter: 2008Q4

REPORT INFORMATION
  Report Type: 
  Country: None (occurrence: None)
  Receive Date: 20081205
  Receipt Date: 20081205
  Transmission Date: 20090506
  Serious: Yes (Life-Threatening)
  Sender: FDA-Public Use
  Company Number: None

PATIENT
  Age: 80 Year
  Sex: Female
  Weight: 57.1532 kg

DRUGS (2)
  1. TARCEVA [Suspect]
     Indication: NON-SMALL CELL LUNG CANCER
     Dosage: 150 MG DAILY PO
     Route: 048
     Dates: start: 20080807, end: 20081117
  2. TARCEVA [Suspect]
     Indication: NON-SMALL CELL LUNG CANCER
     Dosage: 100 MG DAILY PO
     Route: 048
     Dates: start: 20081118, end: 20081126

REACTIONS (2)
  - GLUCOSE TOLERANCE IMPAIRED [None]
  - KETOACIDOSIS [None]
